FAERS Safety Report 15140260 (Version 1)
Quarter: 2018Q3

REPORT INFORMATION
  Report Type: Spontaneous
  Country: FR (occurrence: FR)
  Receive Date: 20180713
  Receipt Date: 20180713
  Transmission Date: 20181010
  Serious: Yes (Death, Life-Threatening, Hospitalization, Other)
  Sender: FDA-Public Use
  Company Number: FR-APOTEX-2018AP017322

PATIENT
  Age: 76 Year
  Sex: Female

DRUGS (3)
  1. CLOBETASOL PROPIONATE. [Suspect]
     Active Substance: CLOBETASOL PROPIONATE
     Indication: PEMPHIGOID
     Dosage: 30 G, PER DAY
     Route: 061
  2. CLOBETASOL PROPIONATE. [Suspect]
     Active Substance: CLOBETASOL PROPIONATE
     Dosage: LOWER THAN 10 G, PER DAY
     Route: 061
  3. MYCOPHENOLATE [Suspect]
     Active Substance: MYCOPHENOLIC ACID
     Indication: PEMPHIGOID
     Dosage: 2 G, PER DAY
     Route: 065

REACTIONS (5)
  - Septic shock [Fatal]
  - Drug effect incomplete [Unknown]
  - Necrotising fasciitis [Fatal]
  - Staphylococcal infection [Fatal]
  - Beta haemolytic streptococcal infection [Fatal]
